FAERS Safety Report 9200622 (Version 1)
Quarter: 2013Q1

REPORT INFORMATION
  Report Type: Spontaneous
  Country: US (occurrence: US)
  Receive Date: 20130330
  Receipt Date: 20130330
  Transmission Date: 20140127
  Serious: Yes (Other)
  Sender: FDA-Public Use
  Company Number: US-PFIZER INC-2004009283

PATIENT
  Age: 20 Year
  Sex: Male

DRUGS (3)
  1. IBUPROFEN [Suspect]
     Indication: BACK PAIN
     Dosage: UNK
     Route: 048
  2. PSEUDOEPHEDRINE HYDROCHLORIDE [Suspect]
     Indication: SINUS HEADACHE
     Dosage: UNK
     Route: 048
  3. PSEUDOEPHEDRINE HYDROCHLORIDE [Suspect]
     Dosage: TEN 60 MG TABLETS PER DAY
     Route: 048

REACTIONS (8)
  - Overdose [Unknown]
  - Renal failure acute [Unknown]
  - Renal papillary necrosis [Unknown]
  - Hydronephrosis [Unknown]
  - Oedema peripheral [Unknown]
  - Nausea [Unknown]
  - Vomiting [Unknown]
  - Calculus urinary [Unknown]
